FAERS Safety Report 19706417 (Version 1)
Quarter: 2021Q3

REPORT INFORMATION
  Report Type: Spontaneous
  Country: US (occurrence: US)
  Receive Date: 20210817
  Receipt Date: 20210817
  Transmission Date: 20211014
  Serious: Yes (Hospitalization, Other)
  Sender: FDA-Public Use
  Company Number: US-LUPIN PHARMACEUTICALS INC.-2021-14766

PATIENT
  Age: 14 Year
  Sex: Female

DRUGS (11)
  1. TOPIRAMAT [Interacting]
     Active Substance: TOPIRAMATE
     Indication: AUTISM SPECTRUM DISORDER
     Dosage: 150 MILLIGRAM, QD, AT BED TIME
     Route: 065
  2. AMANTADINE. [Interacting]
     Active Substance: AMANTADINE HYDROCHLORIDE
     Indication: ATTENTION DEFICIT HYPERACTIVITY DISORDER
  3. HALOPERIDOL. [Concomitant]
     Active Substance: HALOPERIDOL
     Indication: AUTISM SPECTRUM DISORDER
     Dosage: UNK
     Route: 005
  4. CLONIDINE. [Interacting]
     Active Substance: CLONIDINE
     Indication: ATTENTION DEFICIT HYPERACTIVITY DISORDER
  5. BUPROPION HYDROCHLORIDE. [Interacting]
     Active Substance: BUPROPION HYDROCHLORIDE
     Indication: AUTISM SPECTRUM DISORDER
     Dosage: 150 MILLIGRAM, QD (EXTENDED RELEASE, 2 WEEKS BEFORE HER HOSPITALISATION)
     Route: 065
  6. CLONIDINE. [Interacting]
     Active Substance: CLONIDINE
     Indication: AUTISM SPECTRUM DISORDER
     Dosage: 0.2 MILLIGRAM, QD, AT BED TIME
     Route: 065
  7. HALOPERIDOL. [Concomitant]
     Active Substance: HALOPERIDOL
     Indication: ATTENTION DEFICIT HYPERACTIVITY DISORDER
  8. TOPIRAMAT [Interacting]
     Active Substance: TOPIRAMATE
     Indication: ATTENTION DEFICIT HYPERACTIVITY DISORDER
  9. LORAZEPAM. [Suspect]
     Active Substance: LORAZEPAM
     Indication: SEROTONIN SYNDROME
     Dosage: 7.5 MILLIGRAM (OVER 24 HOURS)
     Route: 065
  10. BUPROPION HYDROCHLORIDE. [Interacting]
     Active Substance: BUPROPION HYDROCHLORIDE
     Indication: ATTENTION DEFICIT HYPERACTIVITY DISORDER
  11. AMANTADINE. [Interacting]
     Active Substance: AMANTADINE HYDROCHLORIDE
     Indication: AUTISM SPECTRUM DISORDER
     Dosage: 100 MILLIGRAM, BID, FOR AT LEAST 6 MONTHS
     Route: 065

REACTIONS (5)
  - Drug interaction [Unknown]
  - Agitation [Recovered/Resolved]
  - Psychiatric symptom [Recovered/Resolved]
  - Paradoxical drug reaction [Recovered/Resolved]
  - Neurotoxicity [Recovered/Resolved]
